FAERS Safety Report 5230466-9 (Version None)
Quarter: 2007Q1

REPORT INFORMATION
  Report Type: 
  Country: None (occurrence: None)
  Receive Date: 20070206
  Receipt Date: 20070126
  Transmission Date: 20070707
  Serious: No
  Sender: FDA-Public Use
  Company Number: US-ELI_LILLY_AND_COMPANY-US200701003058

PATIENT
  Age: 76 Year
  Sex: Female

DRUGS (2)
  1. FORTEO [Suspect]
     Indication: OSTEOPOROSIS
     Dosage: 20 UG, UNK
     Route: 058
     Dates: start: 20061219, end: 20070112
  2. FORTEO [Suspect]
     Dates: start: 20070116

REACTIONS (4)
  - ABDOMINAL PAIN [None]
  - FEELING ABNORMAL [None]
  - MUSCLE SPASMS [None]
  - VERTEBROPLASTY [None]
